FAERS Safety Report 6200292-2 (Version None)
Quarter: 2009Q2

REPORT INFORMATION
  Report Type: 
  Country: None (occurrence: None)
  Receive Date: 20090522
  Receipt Date: 20090519
  Transmission Date: 20091009
  Serious: Yes (Death, Hospitalization)
  Sender: FDA-Public Use
  Company Number: JP-JNJFOC-20090501802

PATIENT
  Sex: Female
  Weight: 47 kg

DRUGS (18)
  1. DUROTEP MT PATCH [Suspect]
     Route: 062
  2. DUROTEP MT PATCH [Suspect]
     Route: 062
  3. DUROTEP MT PATCH [Suspect]
     Indication: CANCER PAIN
     Route: 062
  4. LOXOPROFEN SODIUM [Concomitant]
     Indication: ANALGESIC THERAPY
     Route: 048
  5. MOBIC [Concomitant]
     Indication: ANALGESIC THERAPY
     Route: 048
  6. MYSLEE [Concomitant]
     Indication: INSOMNIA
     Route: 048
  7. FERRUM [Concomitant]
     Indication: ANAEMIA
     Route: 048
  8. VINORELBINE TARTRATE [Concomitant]
     Route: 042
  9. VINORELBINE TARTRATE [Concomitant]
     Route: 042
  10. PROCHLORPERAZINE MALEATE [Concomitant]
     Indication: NAUSEA
     Route: 048
  11. ZANTAC [Concomitant]
     Indication: PROPHYLAXIS
     Route: 048
  12. BETAMETHASONE [Concomitant]
     Route: 048
  13. GLYCYRRHIZIC ACID/METHIONINE [Concomitant]
     Indication: METASTASES TO LIVER
     Route: 048
  14. MAGNESIUM OXIDE [Concomitant]
     Indication: CONSTIPATION
     Route: 048
  15. SENNOSIDE (UNSPECIFIED) [Concomitant]
     Indication: CONSTIPATION
     Route: 048
  16. GRAN [Concomitant]
     Indication: WHITE BLOOD CELL COUNT DECREASED
     Route: 058
  17. CIPROFLOXACIN HYDROCHLORIDE [Concomitant]
     Indication: PROPHYLAXIS
     Route: 048
  18. UNKNOWN MEDICATION [Concomitant]
     Indication: ANAEMIA
     Route: 042

REACTIONS (3)
  - BREAST CANCER [None]
  - HEPATIC FAILURE [None]
  - VOMITING [None]
